FAERS Safety Report 4856985-2 (Version None)
Quarter: 2005Q4

REPORT INFORMATION
  Report Type: 
  Country: None (occurrence: None)
  Receive Date: 20051219
  Receipt Date: 20041207
  Transmission Date: 20060501
  Serious: No
  Sender: FDA-Public Use
  Company Number: US-GLAXOSMITHKLINE-A0536303A

PATIENT
  Age: 65 Year
  Sex: Male

DRUGS (3)
  1. EQUATE NTS 21MG [Suspect]
     Dates: start: 20041128
  2. EQUATE NTS 14MG [Suspect]
  3. NICORETTE [Suspect]

REACTIONS (8)
  - ABNORMAL DREAMS [None]
  - DIZZINESS [None]
  - DRUG INEFFECTIVE [None]
  - NICOTINE DEPENDENCE [None]
  - TINNITUS [None]
  - TOOTH ABSCESS [None]
  - TOOTH EXTRACTION [None]
  - TOOTHACHE [None]
